FAERS Safety Report 6131410-2 (Version None)
Quarter: 2009Q1

REPORT INFORMATION
  Report Type: 
  Country: None (occurrence: None)
  Receive Date: 20090325
  Receipt Date: 20080528
  Transmission Date: 20090719
  Serious: No
  Sender: FDA-Public Use
  Company Number: US-BRISTOL-MYERS SQUIBB COMPANY-14210041

PATIENT
  Sex: Male

DRUGS (2)
  1. ERBITUX [Suspect]
     Dosage: 250MG/M2 INFUSEOVER 4HRS,REDCDINFUSIONTIMEBY 30MM TO THE 2HRINFUSION TIME,1HR TIMEFRAME WK INFUSION
  2. BENADRYL [Concomitant]
     Route: 048

REACTIONS (1)
  - INFUSION RELATED REACTION [None]
